FAERS Safety Report 23995807 (Version 1)
Quarter: 2024Q2

REPORT INFORMATION
  Report Type: Report from Study
  Country: US (occurrence: US)
  Receive Date: 20240620
  Receipt Date: 20240620
  Transmission Date: 20240715
  Serious: No
  Sender: FDA-Public Use
  Company Number: US-BIOVITRUM-2024-US-008821

PATIENT
  Age: 59 Year
  Sex: Female

DRUGS (1)
  1. DOPTELET [Suspect]
     Active Substance: AVATROMBOPAG MALEATE
     Indication: Immune thrombocytopenia
     Dosage: TAKE 2 TABLETS BY MOUTH EVERY MONDAY, WEDNESDAY AND FRIDAY AND TAKE 1 TABLET BY MOUTH EVERY TUESDAY,
     Route: 048
     Dates: start: 202403

REACTIONS (1)
  - Drug ineffective [Unknown]
